FAERS Safety Report 15546954 (Version 13)
Quarter: 2020Q2

REPORT INFORMATION
  Report Type: Report from Study
  Country: NL (occurrence: NL)
  Receive Date: 20181024
  Receipt Date: 20200630
  Transmission Date: 20200713
  Serious: Yes (Hospitalization)
  Sender: FDA-Public Use
  Company Number: NL-SA-2018SA141172

PATIENT

DRUGS (2)
  1. ALEMTUZUMAB [Suspect]
     Active Substance: ALEMTUZUMAB
     Indication: RELAPSING MULTIPLE SCLEROSIS
     Dosage: 12 MG, QD
     Route: 041
     Dates: start: 20171009, end: 20171011
  2. ALEMTUZUMAB [Suspect]
     Active Substance: ALEMTUZUMAB
     Dosage: 12 MG, QD
     Route: 041
     Dates: start: 20160926, end: 20160930

REACTIONS (13)
  - Immune thrombocytopenia [Recovered/Resolved]
  - Eye pain [Not Recovered/Not Resolved]
  - Femur fracture [Recovered/Resolved]
  - Musculoskeletal pain [Recovered/Resolved]
  - Influenza [Recovered/Resolved]
  - Infusion site swelling [Recovered/Resolved]
  - Nausea [Recovered/Resolved]
  - Renal vein thrombosis [Recovered/Resolved]
  - Depression [Not Recovered/Not Resolved]
  - Vomiting [Recovered/Resolved]
  - Malaise [Recovered/Resolved]
  - Haemarthrosis [Recovered/Resolved]
  - Urinary tract infection [Recovered/Resolved]

NARRATIVE: CASE EVENT DATE: 20171009
